FAERS Safety Report 4762091-8 (Version None)
Quarter: 2005Q3

REPORT INFORMATION
  Report Type: 
  Country: None (occurrence: None)
  Receive Date: 20050901
  Receipt Date: 20050510
  Transmission Date: 20060218
  Serious: No
  Sender: FDA-Public Use
  Company Number: 200510936BWH

PATIENT
  Age: 75 Year
  Sex: Male

DRUGS (6)
  1. LEVITRA [Suspect]
     Dosage: 20 MG, TOTAL DAILY, ORAL
     Route: 048
  2. GLUCOPHAGE [Concomitant]
  3. HYTRIN [Concomitant]
  4. NEURONTIN [Concomitant]
  5. LEVOXYL [Concomitant]
  6. LORAZEPAM [Concomitant]

REACTIONS (1)
  - DRUG INEFFECTIVE [None]
